FAERS Safety Report 8893919 (Version 1)
Quarter: 2012Q4

REPORT INFORMATION
  Report Type: 
  Country: US (occurrence: US)
  Receive Date: 20121107
  Receipt Date: 20121107
  Transmission Date: 20130627
  Serious: No
  Sender: FDA-Public Use
  Company Number: US-AMGEN-USASP2011060155

PATIENT
  Age: 60 Year
  Sex: Male

DRUGS (5)
  1. ENBREL [Suspect]
     Indication: PRODUCT USED FOR UNKNOWN INDICATION
     Dosage: 50 mg, qwk
     Route: 058
  2. METHOTREXATE [Concomitant]
     Dosage: 2.5 mg, UNK
  3. METOPROLOL [Concomitant]
     Dosage: 25 mg, UNK
  4. DIOVAN [Concomitant]
     Dosage: 320 mg, UNK
  5. ASPIRIN (E.C.) [Concomitant]
     Dosage: 325 mg, UNK

REACTIONS (1)
  - Nasopharyngitis [Unknown]
